FAERS Safety Report 20750441 (Version 10)
Quarter: 2023Q2

REPORT INFORMATION
  Report Type: Spontaneous
  Country: US (occurrence: US)
  Receive Date: 20220426
  Receipt Date: 20230623
  Transmission Date: 20230721
  Serious: No
  Sender: FDA-Public Use
  Company Number: US-PFIZER INC-202101236365

PATIENT
  Age: 57 Year
  Sex: Male

DRUGS (2)
  1. SUTENT [Suspect]
     Active Substance: SUNITINIB MALATE
     Dosage: 37.5 MG, CYCLIC (CAPSULE FOR 14 DAYS THEN OFF 7 DAYS)
     Route: 048
  2. SUTENT [Suspect]
     Active Substance: SUNITINIB MALATE
     Dosage: 25 MG, CYCLIC (ONCE DAILY FOR 14 DAYS THEN OFF 7 DAYS)
     Route: 048

REACTIONS (1)
  - Hypoacusis [Unknown]
